FAERS Safety Report 17742135 (Version 3)
Quarter: 2020Q2

REPORT INFORMATION
  Report Type: Spontaneous
  Country: JP (occurrence: JP)
  Receive Date: 20200505
  Receipt Date: 20200629
  Transmission Date: 20200714
  Serious: Yes (Hospitalization, Other)
  Sender: FDA-Public Use
  Company Number: JP-TAKEDA-2020TJP008469

PATIENT
  Age: 79 Year
  Sex: Male
  Weight: 53.3 kg

DRUGS (6)
  1. PREDONINE [Suspect]
     Active Substance: PREDNISOLONE
     Indication: PRODUCT USED FOR UNKNOWN INDICATION
     Dosage: 60 MILLIGRAM, QD
     Route: 065
     Dates: start: 20200331, end: 20200406
  2. REVLIMID [Suspect]
     Active Substance: LENALIDOMIDE
     Indication: PRODUCT USED FOR UNKNOWN INDICATION
     Dosage: 10 MILLIGRAM, QD
     Route: 065
     Dates: start: 20200407, end: 20200410
  3. ALKERAN [Suspect]
     Active Substance: MELPHALAN
     Indication: PRODUCT USED FOR UNKNOWN INDICATION
     Dosage: 14 MILLIGRAM, QD
     Route: 065
     Dates: start: 20200331, end: 20200406
  4. NINLARO [Suspect]
     Active Substance: IXAZOMIB CITRATE
     Indication: PLASMA CELL MYELOMA
     Dosage: 3 MILLIGRAM, QD
     Route: 048
     Dates: start: 20200407, end: 20200407
  5. LENADEX [Suspect]
     Active Substance: DEXAMETHASONE ACETATE
     Indication: PRODUCT USED FOR UNKNOWN INDICATION
     Dosage: 40 MILLIGRAM, QD
     Route: 065
     Dates: start: 20200407, end: 20200410
  6. AMPICILLIN SODIUM W/SULBACTAM SODIUM [Concomitant]
     Active Substance: AMPICILLIN SODIUM\SULBACTAM SODIUM
     Dosage: UNK
     Route: 042
     Dates: start: 20200331, end: 20200413

REACTIONS (25)
  - Anaemia [Recovered/Resolved]
  - Cytokine storm [Recovering/Resolving]
  - Blood beta-D-glucan positive [Recovering/Resolving]
  - Catheter site exfoliation [Recovering/Resolving]
  - Blood potassium increased [Recovered/Resolved]
  - Hypokalaemia [Recovered/Resolved]
  - Cytomegalovirus infection [Recovering/Resolving]
  - Cardiac failure [Recovering/Resolving]
  - Cardiac failure chronic [Recovering/Resolving]
  - Lumbar spinal stenosis [Not Recovered/Not Resolved]
  - Constipation [Unknown]
  - Platelet count decreased [Recovered/Resolved]
  - Intestinal dilatation [Recovering/Resolving]
  - Weight increased [Unknown]
  - Oral pain [Recovered/Resolved]
  - Diarrhoea [Unknown]
  - Tongue ulceration [Recovered/Resolved]
  - Catheter site swelling [Recovered/Resolved]
  - Dermatitis diaper [Recovering/Resolving]
  - Hypercalcaemia [Recovered/Resolved]
  - Pain in extremity [Unknown]
  - Bone marrow failure [Recovering/Resolving]
  - Aortic aneurysm [Not Recovered/Not Resolved]
  - Catheter site erythema [Recovered/Resolved]
  - Febrile neutropenia [Recovered/Resolved]

NARRATIVE: CASE EVENT DATE: 20200409
